FAERS Safety Report 21335518 (Version 1)
Quarter: 2022Q3

REPORT INFORMATION
  Report Type: Spontaneous
  Country: US (occurrence: US)
  Receive Date: 20220915
  Receipt Date: 20220915
  Transmission Date: 20221027
  Serious: Yes (Death, Hospitalization)
  Sender: FDA-Public Use
  Company Number: US-STRIDES ARCOLAB LIMITED-2022SP011517

PATIENT
  Age: 65 Year
  Sex: Female

DRUGS (4)
  1. PREDNISOLONE [Suspect]
     Active Substance: PREDNISOLONE
     Indication: Lung transplant
     Dosage: UNK
     Route: 065
  2. TACROLIMUS [Suspect]
     Active Substance: TACROLIMUS
     Indication: Lung transplant
     Dosage: UNK
     Route: 065
  3. MYCOPHENOLATE MOFETIL [Suspect]
     Active Substance: MYCOPHENOLATE MOFETIL
     Indication: Lung transplant
     Dosage: UNK
     Route: 065
  4. BASILIXIMAB [Suspect]
     Active Substance: BASILIXIMAB
     Indication: Lung transplant
     Dosage: UNK, ADMINISTERED ON POSTOPERATIVE DAYS 0 AND 4
     Route: 065

REACTIONS (9)
  - Disseminated tuberculosis [Fatal]
  - Infectious pleural effusion [Not Recovered/Not Resolved]
  - Staphylococcal infection [Unknown]
  - Klebsiella infection [Unknown]
  - Citrobacter infection [Unknown]
  - Respiratory syncytial virus infection [Unknown]
  - Aspergillus infection [Unknown]
  - Respiratory tract infection [Unknown]
  - Clostridium difficile colitis [Unknown]
